FAERS Safety Report 6373508-X (Version None)
Quarter: 2009Q3

REPORT INFORMATION
  Report Type: 
  Country: None (occurrence: None)
  Receive Date: 20090924
  Receipt Date: 20090224
  Transmission Date: 20100115
  Serious: No
  Sender: FDA-Public Use
  Company Number: US-ASTRAZENECA-2009UW05301

PATIENT
  Age: 38 Year
  Sex: Male

DRUGS (4)
  1. SEROQUEL [Suspect]
     Route: 048
  2. NEXIUM [Concomitant]
     Route: 048
  3. ACIPHEX [Concomitant]
  4. REGLAN [Concomitant]

REACTIONS (3)
  - CHOKING [None]
  - COUGH [None]
  - GASTROOESOPHAGEAL REFLUX DISEASE [None]
